FAERS Safety Report 19733851 (Version 2)
Quarter: 2021Q3

REPORT INFORMATION
  Report Type: Spontaneous
  Country: JP (occurrence: JP)
  Receive Date: 20210823
  Receipt Date: 20210907
  Transmission Date: 20211014
  Serious: Yes (Hospitalization, Other)
  Sender: FDA-Public Use
  Company Number: JP-ACCORD-235684

PATIENT
  Age: 73 Year
  Sex: Male
  Weight: 59.6 kg

DRUGS (6)
  1. MEMANTINE/MEMANTINE HYDROCHLORIDE [Concomitant]
     Active Substance: MEMANTINE HYDROCHLORIDE
     Indication: COGNITIVE DISORDER
  2. GALANTAMINE/GALANTAMINE HYDROBROMIDE [Concomitant]
     Active Substance: GALANTAMINE\GALANTAMINE HYDROBROMIDE
     Indication: COGNITIVE DISORDER
  3. CLONAZEPAM. [Suspect]
     Active Substance: CLONAZEPAM
     Indication: DEMENTIA
     Dosage: VERY LOW DOSE (OVER 1YEARS)
  4. ASENAPINE/ASENAPINE MALEATE [Suspect]
     Active Substance: ASENAPINE MALEATE
     Indication: COGNITIVE DISORDER
     Dosage: 5 MG/ DAY FOR 2 WEEKS
  5. QUETIAPINE/QUETIAPINE FUMARATE [Suspect]
     Active Substance: QUETIAPINE FUMARATE
     Indication: DEMENTIA
     Dosage: VERY LOW DOSE
  6. HALOPERIDOL. [Suspect]
     Active Substance: HALOPERIDOL
     Indication: TOURETTE^S DISORDER

REACTIONS (3)
  - Tourette^s disorder [Recovering/Resolving]
  - Condition aggravated [Recovering/Resolving]
  - Tardive dyskinesia [Recovering/Resolving]
